FAERS Safety Report 8100169 (Version 4)
Quarter: 2013Q4

REPORT INFORMATION
  Report Type: Spontaneous
  Country: US (occurrence: US)
  Receive Date: 20110822
  Receipt Date: 20131127
  Transmission Date: 20140711
  Serious: Yes (Hospitalization)
  Sender: FDA-Public Use
  Company Number: US-GLAXOSMITHKLINE-A0915671A

PATIENT
  Age: 49 Year
  Sex: Male
  Weight: 131.8 kg

DRUGS (1)
  1. AVANDAMET [Suspect]
     Indication: DIABETES MELLITUS
     Route: 048
     Dates: start: 200710, end: 201002

REACTIONS (7)
  - Myocardial ischaemia [Unknown]
  - Palpitations [Unknown]
  - Coronary artery disease [Unknown]
  - Hypertension [Unknown]
  - Dyslipidaemia [Unknown]
  - Pain in extremity [Unknown]
  - Chest pain [Unknown]
